FAERS Safety Report 7609251-6 (Version None)
Quarter: 2011Q3

REPORT INFORMATION
  Report Type: 
  Country: None (occurrence: None)
  Receive Date: 20110714
  Receipt Date: 20110708
  Transmission Date: 20111222
  Serious: Yes (Death, Life-Threatening, Hospitalization)
  Sender: FDA-Public Use
  Company Number: FR-ELI_LILLY_AND_COMPANY-FR201107002143

PATIENT
  Sex: Female

DRUGS (2)
  1. GEMZAR [Suspect]
     Dosage: 2 MG/M2, UNKNOWN
     Route: 042
     Dates: start: 20110525
  2. GEMZAR [Suspect]
     Dosage: 2 MG/M2, UNKNOWN
     Route: 042

REACTIONS (4)
  - RENAL FAILURE ACUTE [None]
  - ACUTE HEPATIC FAILURE [None]
  - HEPATORENAL SYNDROME [None]
  - HEPATIC ENCEPHALOPATHY [None]
